FAERS Safety Report 24349229 (Version 5)
Quarter: 2025Q2

REPORT INFORMATION
  Report Type: Spontaneous
  Country: PL (occurrence: PL)
  Receive Date: 20240923
  Receipt Date: 20250509
  Transmission Date: 20250717
  Serious: Yes (Hospitalization)
  Sender: AUROBINDO
  Company Number: PL-SA-2024SA256865

PATIENT
  Age: 31 Year
  Sex: Female

DRUGS (15)
  1. AMOXICILLIN\CLAVULANIC ACID [Interacting]
     Active Substance: AMOXICILLIN\CLAVULANIC ACID
     Indication: Oropharyngeal pain
     Route: 065
  2. AMOXICILLIN [Interacting]
     Active Substance: AMOXICILLIN
     Indication: Oropharyngeal pain
     Dosage: 1 GRAM, 3 TIMES A DAY
     Route: 048
  3. AMLODIPINE [Interacting]
     Active Substance: AMLODIPINE BESYLATE
     Indication: Hypertension
     Dosage: 10 MILLIGRAM, ONCE A DAY
     Route: 065
  4. MIRTAZAPINE [Suspect]
     Active Substance: MIRTAZAPINE
     Indication: Depression
     Dosage: 30 MILLIGRAM, ONCE A DAY
     Route: 065
  5. ACETAMINOPHEN [Interacting]
     Active Substance: ACETAMINOPHEN
     Indication: Oropharyngeal pain
     Dosage: 1 GRAM, 3 TIMES A DAY
     Route: 065
  6. RAMIPRIL [Interacting]
     Active Substance: RAMIPRIL
     Indication: Hypertension
     Dosage: 10 MILLIGRAM, ONCE A DAY
     Route: 065
  7. SERTRALINE [Interacting]
     Active Substance: SERTRALINE HYDROCHLORIDE
     Indication: Depression
     Dosage: 100 MG, ONCE A DAY, QD (IN THE MORNING )
     Route: 065
  8. ZOLPIDEM [Interacting]
     Active Substance: ZOLPIDEM TARTRATE
     Indication: Insomnia
     Route: 065
  9. BUPROPION [Interacting]
     Active Substance: BUPROPION
     Indication: Product used for unknown indication
     Route: 065
  10. DICLOFENAC [Interacting]
     Active Substance: DICLOFENAC
     Indication: Oropharyngeal pain
     Route: 065
  11. LIDOCAINE [Suspect]
     Active Substance: LIDOCAINE
     Indication: Product used for unknown indication
     Route: 065
  12. NALTREXONE [Interacting]
     Active Substance: NALTREXONE
     Indication: Product used for unknown indication
     Route: 065
  13. SEMAGLUTIDE [Suspect]
     Active Substance: SEMAGLUTIDE
     Indication: Product used for unknown indication
     Route: 065
  14. BUPROPION HYDROCHLORIDE\NALTREXONE HYDROCHLORIDE [Suspect]
     Active Substance: BUPROPION HYDROCHLORIDE\NALTREXONE HYDROCHLORIDE
     Indication: Product used for unknown indication
     Route: 065
  15. KETOPROFEN [Suspect]
     Active Substance: KETOPROFEN
     Indication: Product used for unknown indication
     Route: 042

REACTIONS (13)
  - Burning sensation [Recovering/Resolving]
  - Condition aggravated [Recovering/Resolving]
  - Dysphagia [Recovering/Resolving]
  - Oropharyngeal pain [Recovering/Resolving]
  - Pain [Recovering/Resolving]
  - Drug interaction [Recovering/Resolving]
  - Food interaction [Recovering/Resolving]
  - Throat irritation [Recovering/Resolving]
  - Increased appetite [Unknown]
  - Abnormal weight gain [Unknown]
  - Mental disorder [Unknown]
  - Weight increased [Unknown]
  - Emotional distress [Unknown]
